FAERS Safety Report 9351285 (Version 1)
Quarter: 2013Q2

REPORT INFORMATION
  Report Type: Report from Study
  Country: GB (occurrence: GB)
  Receive Date: 20130617
  Receipt Date: 20130617
  Transmission Date: 20140414
  Serious: Yes (Other)
  Sender: FDA-Public Use
  Company Number: PHHY2013GB058518

PATIENT
  Age: 16 Year
  Sex: Female
  Weight: 53.6 kg

DRUGS (20)
  1. DOXORUBICIN [Suspect]
     Indication: OSTEOSARCOMA
     Dosage: 59 MG, QD (LIQUID)
     Route: 042
     Dates: start: 20120417, end: 20120419
  2. ONDANSETRON [Suspect]
     Indication: PROPHYLAXIS OF NAUSEA AND VOMITING
     Dosage: 8 MG, QD
     Route: 048
     Dates: start: 20120417, end: 20120417
  3. ONDANSETRON [Suspect]
     Dosage: 8 MG, BID
     Route: 048
     Dates: start: 20120418, end: 20120420
  4. CISPLATIN [Suspect]
     Indication: OSTEOSARCOMA
     Dosage: 63 MG, QD
     Route: 042
     Dates: start: 20120417, end: 20120420
  5. DEXAMETHASONE SODIUM PHOSPHATE [Suspect]
     Indication: PROPHYLAXIS OF NAUSEA AND VOMITING
     Dosage: 12 ML, QD
     Route: 041
     Dates: start: 20120417, end: 20120417
  6. DEXAMETHASONE SODIUM PHOSPHATE [Suspect]
     Dosage: 15 ML, QD
     Route: 042
     Dates: start: 20120418, end: 20120420
  7. DOXORUBICIN [Suspect]
     Indication: OSTEOSARCOMA
     Dosage: 59 MG, QD (LIPOSOME INJECTION)
     Route: 042
     Dates: start: 20120417, end: 20120419
  8. APREPITANT [Suspect]
     Indication: PROPHYLAXIS OF NAUSEA AND VOMITING
     Dosage: 125 MG, UNK
     Route: 048
     Dates: start: 20120417, end: 20120417
  9. APREPITANT [Suspect]
     Dosage: 80 MG, UNK
     Route: 048
     Dates: start: 20120418, end: 20120419
  10. DIHYDROCODEINE [Concomitant]
     Indication: PAIN MANAGEMENT
     Dosage: 30 MG, UNK
     Route: 065
     Dates: start: 20120414, end: 20120415
  11. TETRACAINE [Concomitant]
     Indication: ANALGESIC THERAPY
     Dosage: UNK UKN, UNK
     Route: 061
     Dates: start: 20120413, end: 20120413
  12. ONDANSETRON [Concomitant]
     Indication: NAUSEA
     Dosage: 8 MG, BID
     Route: 042
     Dates: start: 20120414, end: 20120414
  13. METOCLOPRAMIDE [Concomitant]
     Indication: VOMITING
     Dosage: 10 MG, QID
     Route: 065
     Dates: start: 20120419, end: 20120419
  14. METOCLOPRAMIDE [Concomitant]
     Indication: NAUSEA
     Dosage: 10 MG, QID
     Route: 065
     Dates: start: 20120419, end: 20120419
  15. ACETAMINOPHEN [Concomitant]
     Indication: ANALGESIC THERAPY
     Dosage: 1 G, QD
     Route: 065
     Dates: start: 20120413, end: 20120418
  16. LACTULOSE [Concomitant]
     Indication: CONSTIPATION
     Dosage: 10 ML, UNK
     Route: 065
     Dates: start: 20120418
  17. LACTULOSE [Concomitant]
     Dosage: 10 ML, BID
     Route: 065
     Dates: start: 20120419
  18. LACTULOSE [Concomitant]
     Dosage: 10 ML, UNK
     Route: 065
     Dates: start: 20120420
  19. DIAZEPAM [Concomitant]
     Indication: SEDATION
     Dosage: 3 MG, UNK
     Route: 065
     Dates: start: 20120424
  20. LEVOMEPROMAZINE [Concomitant]
     Indication: VOMITING
     Dosage: 25 MG, BID
     Route: 042
     Dates: start: 20120419, end: 20120419

REACTIONS (3)
  - Electrocardiogram T wave inversion [Recovered/Resolved]
  - Dyskinesia [Recovered/Resolved]
  - Sinus arrhythmia [Recovered/Resolved]
